FAERS Safety Report 7831681-8 (Version None)
Quarter: 2011Q4

REPORT INFORMATION
  Report Type: 
  Country: None (occurrence: None)
  Receive Date: 20111019
  Receipt Date: 20111011
  Transmission Date: 20120403
  Serious: Yes (Hospitalization, Other)
  Sender: FDA-Public Use
  Company Number: ABR_00261_2011

PATIENT
  Age: 5 Year
  Sex: Female

DRUGS (2)
  1. ERYTHROMYCIN [Suspect]
     Indication: TONSILLITIS
     Dosage: 1000 MG, (250 MG, 4 IN 1 D), ORAL
     Route: 048
     Dates: start: 20110922, end: 20110923
  2. ACETAMINOPHEN [Concomitant]

REACTIONS (2)
  - PALLOR [None]
  - PANCREATITIS ACUTE [None]
